FAERS Safety Report 25483010 (Version 1)
Quarter: 2025Q2

REPORT INFORMATION
  Report Type: Spontaneous
  Country: US (occurrence: None)
  Receive Date: 20250625
  Receipt Date: 20250625
  Transmission Date: 20250716
  Serious: Yes (Hospitalization)
  Sender: FDA-CTU
  Company Number: None

PATIENT
  Sex: Male

DRUGS (8)
  1. SPRAVATO [Suspect]
     Active Substance: ESKETAMINE
     Dosage: FREQUENCY : WEEKLY;?STRENGTH  28MG/DEVICE
     Route: 045
     Dates: start: 20240328
  2. FELBATOL [Concomitant]
     Active Substance: FELBAMATE
  3. FYCOMPA [Concomitant]
     Active Substance: PERAMPANEL
  4. KEPPRA XR [Suspect]
     Active Substance: LEVETIRACETAM
  5. MESALAMINE [Concomitant]
     Active Substance: MESALAMINE
  6. TRADJENTA [Concomitant]
     Active Substance: LINAGLIPTIN
  7. VIIBRYD [Concomitant]
     Active Substance: VILAZODONE HYDROCHLORIDE
  8. ZYRTEC ALLGY [Concomitant]

REACTIONS (1)
  - Hospitalisation [None]
